FAERS Safety Report 5356714-2 (Version None)
Quarter: 2007Q2

REPORT INFORMATION
  Report Type: 
  Country: None (occurrence: None)
  Receive Date: 20070530
  Receipt Date: 20061212
  Transmission Date: 20071010
  Serious: Yes (Hospitalization, Other)
  Sender: FDA-Public Use
  Company Number: US200608003939

PATIENT
  Sex: Female
  Weight: 43.1 kg

DRUGS (4)
  1. ZYPREXA [Suspect]
     Indication: DEPRESSION
     Dosage: 2.5 MG
     Dates: start: 20030901, end: 20050101
  2. REMERON [Concomitant]
  3. LOPRESSOR [Concomitant]
  4. BUPROPION HCL [Concomitant]

REACTIONS (2)
  - CEREBROVASCULAR ACCIDENT [None]
  - PANCREATITIS [None]
